FAERS Safety Report 5155581-X (Version None)
Quarter: 2006Q4

REPORT INFORMATION
  Report Type: 
  Country: None (occurrence: None)
  Receive Date: 20061114
  Receipt Date: 20061106
  Transmission Date: 20070319
  Serious: Yes (Other)
  Sender: FDA-Public Use
  Company Number: 2006136320

PATIENT
  Sex: Male

DRUGS (2)
  1. BENADRYL [Suspect]
     Indication: SLEEP DISORDER
     Dosage: ONE TO TWO TABLETS EVERY NIGHT, ORAL
     Route: 048
  2. TYLENOL PM (DIPHENHYDRAMINE, PARACETAMOL) [Suspect]
     Indication: SLEEP DISORDER

REACTIONS (2)
  - DEAFNESS [None]
  - TINNITUS [None]
